FAERS Safety Report 12969144 (Version 2)
Quarter: 2016Q4

REPORT INFORMATION
  Report Type: Spontaneous
  Country: US (occurrence: US)
  Receive Date: 20161123
  Receipt Date: 20161213
  Transmission Date: 20170207
  Serious: No
  Sender: FDA-Public Use
  Company Number: US-GILEAD-2016-0244601

PATIENT
  Sex: Female
  Weight: 44.17 kg

DRUGS (1)
  1. EPCLUSA [Suspect]
     Active Substance: SOFOSBUVIR\VELPATASVIR
     Indication: HEPATITIS C
     Dosage: UNK
     Route: 065
     Dates: start: 20161113

REACTIONS (6)
  - Abdominal pain upper [Unknown]
  - Back pain [Unknown]
  - Diarrhoea [Unknown]
  - Headache [Unknown]
  - Amnesia [Unknown]
  - Colitis [Unknown]
